FAERS Safety Report 18734266 (Version 1)
Quarter: 2021Q1

REPORT INFORMATION
  Report Type: Report from Study
  Country: US (occurrence: US)
  Receive Date: 20210113
  Receipt Date: 20210113
  Transmission Date: 20210419
  Serious: Yes (Death)
  Sender: FDA-Public Use
  Company Number: US-ASTRAZENECA-2021A003718

PATIENT
  Sex: Male

DRUGS (17)
  1. ACTOS [Concomitant]
     Active Substance: PIOGLITAZONE HYDROCHLORIDE
  2. ALLOPURINOL. [Concomitant]
     Active Substance: ALLOPURINOL
  3. METOPROLOL TARTARATE [Suspect]
     Active Substance: METOPROLOL TARTRATE
     Route: 065
  4. CENTRUM [Concomitant]
     Active Substance: VITAMINS
  5. ELIQUIS [Concomitant]
     Active Substance: APIXABAN
  6. VITAMIN D3 [Concomitant]
     Active Substance: CHOLECALCIFEROL
  7. FERROUS SULFATE. [Concomitant]
     Active Substance: FERROUS SULFATE
  8. FUROSEMIDE. [Concomitant]
     Active Substance: FUROSEMIDE
  9. MYCOPHENOLATE [Concomitant]
     Active Substance: MYCOPHENOLIC ACID
  10. TRAVATAN Z DRO [Concomitant]
  11. GABAPENTIN. [Concomitant]
     Active Substance: GABAPENTIN
  12. NEXIUM [Concomitant]
     Active Substance: ESOMEPRAZOLE MAGNESIUM
  13. ZAFIRLUKAST. [Concomitant]
     Active Substance: ZAFIRLUKAST
  14. CINNAMON. [Concomitant]
     Active Substance: CINNAMON
  15. SODIUM BICARBONATE. [Concomitant]
     Active Substance: SODIUM BICARBONATE
  16. FASENRA [Suspect]
     Active Substance: BENRALIZUMAB
     Indication: ASTHMA
     Route: 058
     Dates: start: 20190724
  17. TYLENOL [Concomitant]
     Active Substance: ACETAMINOPHEN

REACTIONS (1)
  - Death [Fatal]
